FAERS Safety Report 5203520-5 (Version None)
Quarter: 2007Q1

REPORT INFORMATION
  Report Type: 
  Country: None (occurrence: None)
  Receive Date: 20070105
  Receipt Date: 20061228
  Transmission Date: 20070707
  Serious: Yes (Other)
  Sender: FDA-Public Use
  Company Number: GXKR2006DE08474

PATIENT
  Age: 46 Year
  Sex: Female
  Weight: 55 kg

DRUGS (2)
  1. PREDNIHEXAL (NGX) (PREDNISOLONE) TABLET, 5MG [Suspect]
     Indication: RHEUMATOID ARTHRITIS
     Dosage: 2.5 MG, QD, ORAL; 5 MG, QD, ORAL
     Route: 048
     Dates: start: 20060101
  2. LANTAREL (METHOTREXATE SODIUM) [Concomitant]

REACTIONS (5)
  - NAUSEA [None]
  - PHARMACEUTICAL PRODUCT COMPLAINT [None]
  - SYNCOPE [None]
  - VERTIGO [None]
  - VISUAL DISTURBANCE [None]
